FAERS Safety Report 12758400 (Version 1)
Quarter: 2016Q3

REPORT INFORMATION
  Report Type: Spontaneous
  Country: FR (occurrence: FR)
  Receive Date: 20160919
  Receipt Date: 20160919
  Transmission Date: 20161109
  Serious: Yes (Other)
  Sender: FDA-Public Use
  Company Number: FR-SA-2016SA157377

PATIENT
  Age: 33 Year
  Sex: Female

DRUGS (1)
  1. AUBAGIO [Suspect]
     Active Substance: TERIFLUNOMIDE
     Route: 065
     Dates: start: 201501

REACTIONS (12)
  - Paraesthesia [Unknown]
  - Diarrhoea [Recovering/Resolving]
  - Balance disorder [Unknown]
  - Multiple sclerosis relapse [Unknown]
  - Drug ineffective [Unknown]
  - Alopecia [Recovering/Resolving]
  - Abdominal discomfort [Unknown]
  - Abdominal pain [Recovering/Resolving]
  - Visual impairment [Unknown]
  - Sensory loss [Unknown]
  - Weight decreased [Unknown]
  - Alopecia [Unknown]

NARRATIVE: CASE EVENT DATE: 2015
